FAERS Safety Report 17966073 (Version 3)
Quarter: 2024Q2

REPORT INFORMATION
  Report Type: Other
  Country: CA (occurrence: CA)
  Receive Date: 20200701
  Receipt Date: 20240618
  Transmission Date: 20240715
  Serious: Yes (Other)
  Sender: FDA-Public Use
  Company Number: CA-GLENMARK PHARMACEUTICALS-2020GMK048311

PATIENT

DRUGS (52)
  1. GABAPENTIN [Interacting]
     Active Substance: GABAPENTIN
     Indication: Migraine
     Dosage: UNK
     Route: 065
  2. AMITRIPTYLINE [Interacting]
     Active Substance: AMITRIPTYLINE
     Indication: Migraine
     Dosage: UNK
     Route: 065
  3. CANDESARTAN CILEXETIL [Interacting]
     Active Substance: CANDESARTAN CILEXETIL
     Indication: Migraine
     Dosage: UNK
     Route: 048
  4. DULOXETINE [Interacting]
     Active Substance: DULOXETINE
     Indication: Migraine
     Dosage: UNK
     Route: 065
  5. MIRTAZAPINE [Interacting]
     Active Substance: MIRTAZAPINE
     Indication: Migraine
     Dosage: UNK
     Route: 065
  6. MIRTAZAPINE [Interacting]
     Active Substance: MIRTAZAPINE
     Dosage: UNK
     Route: 048
  7. ONDANSETRON [Interacting]
     Active Substance: ONDANSETRON
     Indication: Migraine
     Dosage: UNK
     Route: 065
  8. OXYCODONE [Interacting]
     Active Substance: OXYCODONE\OXYCODONE HYDROCHLORIDE
     Indication: Migraine
     Dosage: UNK
     Route: 065
  9. PERINDOPRIL ERBUMINE [Interacting]
     Active Substance: PERINDOPRIL ERBUMINE
     Indication: Toxicity to various agents
     Dosage: UNK
     Route: 065
  10. PERINDOPRIL ERBUMINE [Interacting]
     Active Substance: PERINDOPRIL ERBUMINE
     Indication: Nephropathy toxic
     Dosage: UNK
     Route: 065
  11. PERINDOPRIL ERBUMINE [Interacting]
     Active Substance: PERINDOPRIL ERBUMINE
     Indication: Hypertension
     Dosage: UNK
     Route: 065
  12. PERINDOPRIL ERBUMINE [Interacting]
     Active Substance: PERINDOPRIL ERBUMINE
     Indication: Migraine
     Dosage: UNK
     Route: 065
  13. PERINDOPRIL ERBUMINE [Interacting]
     Active Substance: PERINDOPRIL ERBUMINE
     Dosage: UNK
     Route: 065
  14. PERINDOPRIL ERBUMINE [Interacting]
     Active Substance: PERINDOPRIL ERBUMINE
     Dosage: UNK
     Route: 065
  15. PERINDOPRIL ERBUMINE [Interacting]
     Active Substance: PERINDOPRIL ERBUMINE
     Dosage: UNK
     Route: 065
  16. PERINDOPRIL ERBUMINE [Interacting]
     Active Substance: PERINDOPRIL ERBUMINE
     Dosage: UNK
     Route: 065
  17. PERINDOPRIL ERBUMINE [Interacting]
     Active Substance: PERINDOPRIL ERBUMINE
     Dosage: UNK
     Route: 065
  18. PROPRANOLOL [Interacting]
     Active Substance: PROPRANOLOL HYDROCHLORIDE
     Indication: Toxicity to various agents
     Dosage: UNK
     Route: 065
  19. PROPRANOLOL [Interacting]
     Active Substance: PROPRANOLOL HYDROCHLORIDE
     Indication: Nephropathy toxic
     Dosage: UNK
     Route: 048
  20. PROPRANOLOL [Interacting]
     Active Substance: PROPRANOLOL HYDROCHLORIDE
     Indication: Hypertension
     Dosage: 120 MILLIGRAM, OD
     Route: 065
  21. TOPIRAMATE [Interacting]
     Active Substance: TOPIRAMATE
     Indication: Migraine
     Dosage: UNK
     Route: 065
  22. TOPIRAMATE [Interacting]
     Active Substance: TOPIRAMATE
     Dosage: UNK
     Route: 048
  23. CANDESARTAN [Interacting]
     Active Substance: CANDESARTAN
     Indication: Migraine
     Dosage: UNK
     Route: 065
  24. CANDESARTAN [Interacting]
     Active Substance: CANDESARTAN
     Dosage: UNK
     Route: 048
  25. DULOXETINE HYDROCHLORIDE [Interacting]
     Active Substance: DULOXETINE HYDROCHLORIDE
     Indication: Migraine
     Dosage: UNK
     Route: 065
  26. ONDANSETRON HYDROCHLORIDE [Interacting]
     Active Substance: ONDANSETRON HYDROCHLORIDE
     Indication: Migraine
     Dosage: UNK
     Route: 065
  27. ONDANSETRON HYDROCHLORIDE [Interacting]
     Active Substance: ONDANSETRON HYDROCHLORIDE
     Dosage: UNK
     Route: 065
  28. PROPRANOLOL HYDROCHLORIDE [Suspect]
     Active Substance: PROPRANOLOL HYDROCHLORIDE
     Indication: Toxicity to various agents
     Dosage: UNK
     Route: 065
  29. PROPRANOLOL HYDROCHLORIDE [Suspect]
     Active Substance: PROPRANOLOL HYDROCHLORIDE
     Indication: Nephropathy toxic
     Dosage: UNK
     Route: 065
  30. PROPRANOLOL HYDROCHLORIDE [Suspect]
     Active Substance: PROPRANOLOL HYDROCHLORIDE
     Indication: Hypertension
     Dosage: UNK
     Route: 065
  31. ONDANSETRON HYDROCHLORIDE [Suspect]
     Active Substance: ONDANSETRON HYDROCHLORIDE
     Indication: Migraine
     Dosage: UNK
     Route: 065
  32. ONDANSETRON HYDROCHLORIDE [Suspect]
     Active Substance: ONDANSETRON HYDROCHLORIDE
     Dosage: UNK
     Route: 065
  33. PERINDOPRIL [Suspect]
     Active Substance: PERINDOPRIL
     Indication: Toxicity to various agents
     Dosage: UNK
     Route: 065
  34. PERINDOPRIL [Suspect]
     Active Substance: PERINDOPRIL
     Indication: Nephropathy toxic
     Dosage: UNK
     Route: 065
  35. PERINDOPRIL [Suspect]
     Active Substance: PERINDOPRIL
     Indication: Hypertension
     Dosage: UNK
     Route: 065
  36. PERINDOPRIL [Suspect]
     Active Substance: PERINDOPRIL
     Dosage: UNK
     Route: 065
  37. PERINDOPRIL [Suspect]
     Active Substance: PERINDOPRIL
     Dosage: UNK
     Route: 065
  38. PERINDOPRIL [Suspect]
     Active Substance: PERINDOPRIL
     Dosage: UNK
     Route: 065
  39. PERINDOPRIL [Suspect]
     Active Substance: PERINDOPRIL
     Indication: Toxicity to various agents
     Dosage: UNK
     Route: 065
  40. PERINDOPRIL [Suspect]
     Active Substance: PERINDOPRIL
     Indication: Nephropathy toxic
     Dosage: UNK
     Route: 065
  41. PERINDOPRIL [Suspect]
     Active Substance: PERINDOPRIL
     Indication: Hypertension
     Dosage: UNK
     Route: 065
  42. DULOXETINE HYDROCHLORIDE [Suspect]
     Active Substance: DULOXETINE HYDROCHLORIDE
     Indication: Migraine
     Dosage: UNK
     Route: 065
  43. AIMOVIG [Suspect]
     Active Substance: ERENUMAB-AOOE
     Indication: Migraine
     Dosage: UNK
     Route: 065
  44. AIMOVIG [Suspect]
     Active Substance: ERENUMAB-AOOE
     Dosage: UNK
     Route: 058
  45. INDOMETHACIN [Suspect]
     Active Substance: INDOMETHACIN
     Indication: Migraine
     Dosage: UNK
     Route: 065
  46. DOMPERIDONE MALEATE [Concomitant]
     Active Substance: DOMPERIDONE MALEATE
     Indication: Migraine
     Dosage: UNK
     Route: 048
  47. DOMPERIDONE MALEATE [Concomitant]
     Active Substance: DOMPERIDONE MALEATE
     Dosage: UNK
     Route: 065
  48. AMITRIPTYLINE [Concomitant]
     Active Substance: AMITRIPTYLINE
     Indication: Migraine
     Dosage: UNK
     Route: 065
  49. BOTULINUM TOXIN TYPE A [Concomitant]
     Active Substance: BOTULINUM TOXIN TYPE A
     Indication: Migraine
     Dosage: UNK
     Route: 065
  50. DIVALPROEX SODIUM [Concomitant]
     Active Substance: DIVALPROEX SODIUM
     Indication: Migraine
     Dosage: UNK
     Route: 065
  51. DOMPERIDONE [Concomitant]
     Active Substance: DOMPERIDONE
     Indication: Migraine
     Dosage: UNK
     Route: 065
  52. DOMPERIDONE [Concomitant]
     Active Substance: DOMPERIDONE
     Dosage: UNK
     Route: 048

REACTIONS (14)
  - Toxicity to various agents [Unknown]
  - Drug interaction [Unknown]
  - Drug intolerance [Unknown]
  - Electrocardiogram QT prolonged [Unknown]
  - Nephropathy toxic [Unknown]
  - Serotonin syndrome [Unknown]
  - Mental disorder [Unknown]
  - Hypertension [Unknown]
  - Fall [Unknown]
  - Depressed level of consciousness [Unknown]
  - Contraindicated product administered [Unknown]
  - Off label use [Unknown]
  - Drug ineffective for unapproved indication [Unknown]
  - Drug ineffective [Unknown]
